FAERS Safety Report 16626931 (Version 3)
Quarter: 2021Q2

REPORT INFORMATION
  Report Type: Spontaneous
  Country: US (occurrence: US)
  Receive Date: 20190724
  Receipt Date: 20210616
  Transmission Date: 20210716
  Serious: No
  Sender: FDA-Public Use
  Company Number: US-SA-2019SA197376

PATIENT
  Age: 51 Year
  Sex: Female

DRUGS (1)
  1. DUPIXENT [Suspect]
     Active Substance: DUPILUMAB
     Indication: ASTHMA
     Dosage: 300 MG, QOW
     Route: 058
     Dates: start: 20190611

REACTIONS (5)
  - Rash [Unknown]
  - Product use issue [Unknown]
  - Unevaluable event [Unknown]
  - Vision blurred [Unknown]
  - Asthenopia [Unknown]

NARRATIVE: CASE EVENT DATE: 2019
